FAERS Safety Report 15590306 (Version 1)
Quarter: 2018Q4

REPORT INFORMATION
  Report Type: Spontaneous
  Country: FR (occurrence: FR)
  Receive Date: 20181106
  Receipt Date: 20181106
  Transmission Date: 20190205
  Serious: Yes (Congenital Anomaly)
  Sender: FDA-Public Use
  Company Number: FR-JNJFOC-20181100667

PATIENT
  Sex: Male
  Weight: 2.49 kg

DRUGS (1)
  1. ALMOGRAN [Suspect]
     Active Substance: ALMOTRIPTAN MALATE
     Indication: PRODUCT USED FOR UNKNOWN INDICATION
     Route: 064

REACTIONS (7)
  - Oligohydramnios [Recovering/Resolving]
  - Ultrasound uterus abnormal [Recovering/Resolving]
  - Foetal exposure during pregnancy [Unknown]
  - Foetal hypokinesia [Recovering/Resolving]
  - Premature baby [Recovering/Resolving]
  - Placental disorder [Recovering/Resolving]
  - Foetal growth restriction [Recovering/Resolving]

NARRATIVE: CASE EVENT DATE: 20180410
